FAERS Safety Report 13553050 (Version 2)
Quarter: 2017Q2

REPORT INFORMATION
  Report Type: Spontaneous
  Country: US (occurrence: US)
  Receive Date: 20170517
  Receipt Date: 20170623
  Transmission Date: 20170830
  Serious: No
  Sender: FDA-Public Use
  Company Number: US-PFIZER INC-2017215095

PATIENT
  Sex: Female

DRUGS (1)
  1. LYRICA [Suspect]
     Active Substance: PREGABALIN
     Dosage: UNK

REACTIONS (6)
  - Pruritus [Unknown]
  - Neuralgia [Unknown]
  - Vision blurred [Unknown]
  - Tremor [Unknown]
  - Headache [Unknown]
  - Depression [Unknown]
